FAERS Safety Report 6993388-9 (Version None)
Quarter: 2010Q3

REPORT INFORMATION
  Report Type: 
  Country: None (occurrence: None)
  Receive Date: 20100917
  Receipt Date: 20100513
  Transmission Date: 20110219
  Serious: No
  Sender: FDA-Public Use
  Company Number: US-ASTRAZENECA-2010SE22059

PATIENT
  Age: 40 Year
  Sex: Female

DRUGS (4)
  1. SEROQUEL XR [Suspect]
     Indication: DEPRESSION
     Route: 048
     Dates: start: 20030101, end: 20100401
  2. SEROQUEL XR [Suspect]
     Route: 048
     Dates: start: 20100401, end: 20100501
  3. LITHIUM CARBONATE [Concomitant]
     Route: 065
  4. VALIUM [Concomitant]
     Route: 065

REACTIONS (3)
  - CATARACT [None]
  - VISUAL IMPAIRMENT [None]
  - WEIGHT INCREASED [None]
